FAERS Safety Report 7932172 (Version 2)
Quarter: 2017Q3

REPORT INFORMATION
  Report Type: Report from Study
  Country: JP (occurrence: JP)
  Receive Date: 20110505
  Receipt Date: 20170928
  Transmission Date: 20171128
  Serious: Yes (Other)
  Sender: FDA-Public Use
  Company Number: PHHY2011JP36361

PATIENT
  Age: 53 Year
  Sex: Male

DRUGS (16)
  1. DORNER [Concomitant]
     Active Substance: BERAPROST SODIUM
     Indication: ERYTHEMA NODOSUM
     Dosage: 60 UG, UNK
     Route: 048
     Dates: start: 20101214, end: 20101220
  2. AFINITOR [Suspect]
     Active Substance: EVEROLIMUS
     Indication: METASTATIC RENAL CELL CARCINOMA
     Dosage: 10 MG, QD
     Route: 048
     Dates: start: 20101214, end: 20110202
  3. RINDERON V [Concomitant]
     Active Substance: BETAMETHASONE VALERATE
     Indication: ERYTHEMA NODOSUM
     Dosage: 1 MG, UNK
     Route: 048
     Dates: start: 20101214, end: 20110225
  4. RINDERON V [Concomitant]
     Active Substance: BETAMETHASONE VALERATE
     Dosage: 1 MG, UNK
     Route: 048
  5. COLCHICINE. [Concomitant]
     Active Substance: COLCHICINE
     Indication: PRODUCT USED FOR UNKNOWN INDICATION
     Route: 065
  6. NEXAVAR [Concomitant]
     Active Substance: SORAFENIB
     Indication: PRODUCT USED FOR UNKNOWN INDICATION
     Dosage: 400 MG, UNK
     Route: 048
     Dates: start: 20100820, end: 20101118
  7. GOSHAJINKIGAN [Concomitant]
     Active Substance: HERBALS
     Indication: ERYTHEMA NODOSUM
     Dosage: 7.5 G, UNK
     Route: 048
     Dates: start: 20101214, end: 20101220
  8. ATELEC [Concomitant]
     Active Substance: CILNIDIPINE
     Indication: HYPERTENSION
     Dosage: 10 MG, UNK
     Route: 048
     Dates: start: 20101214
  9. CLARITH [Concomitant]
     Active Substance: CLARITHROMYCIN
     Indication: ERYTHEMA NODOSUM
     Dosage: 200 MG, UNK
     Route: 048
     Dates: start: 20101214, end: 20110227
  10. RINDERON V [Concomitant]
     Active Substance: BETAMETHASONE VALERATE
     Dosage: 1.5 MG, UNK
     Route: 048
  11. GASLON [Concomitant]
     Active Substance: IRSOGLADINE MALEATE
     Indication: PROPHYLAXIS
     Dosage: 4 MG, UNK
     Route: 048
     Dates: start: 20110111, end: 20110222
  12. AFINITOR [Suspect]
     Active Substance: EVEROLIMUS
     Dosage: 5 MG, QD
     Route: 048
     Dates: start: 20110216, end: 20110225
  13. AFINITOR [Suspect]
     Active Substance: EVEROLIMUS
     Dosage: 10 MG, QD
     Route: 048
     Dates: start: 20110226
  14. INTERFERON ALFA NOS [Concomitant]
     Active Substance: INTERFERON ALFA-2A OR INTERFERON ALFA-2B
     Indication: METASTATIC RENAL CELL CARCINOMA
     Dosage: 5000000 IU, UNK
     Route: 065
     Dates: start: 20100105, end: 20100608
  15. RINDERON V [Concomitant]
     Active Substance: BETAMETHASONE VALERATE
     Dosage: 0.5 MG, UNK
     Route: 048
  16. DASEN [Concomitant]
     Active Substance: SERRAPEPTASE
     Indication: ERYTHEMA NODOSUM
     Dosage: 30 MG, UNK
     Route: 048
     Dates: start: 20101214, end: 20101220

REACTIONS (19)
  - Erythema nodosum [Not Recovered/Not Resolved]
  - Tinea pedis [Recovering/Resolving]
  - Diarrhoea [Recovering/Resolving]
  - Blood urea increased [Recovered/Resolved]
  - Alanine aminotransferase increased [Not Recovered/Not Resolved]
  - Stomatitis [Not Recovered/Not Resolved]
  - Epistaxis [Recovering/Resolving]
  - Blood bilirubin increased [Recovered/Resolved]
  - Blood lactate dehydrogenase increased [Not Recovered/Not Resolved]
  - Dysgeusia [Recovering/Resolving]
  - Tongue disorder [Recovering/Resolving]
  - C-reactive protein increased [Recovered/Resolved]
  - Hyperglycaemia [Not Recovered/Not Resolved]
  - Hyperkalaemia [Unknown]
  - Pruritus [Not Recovered/Not Resolved]
  - Pharyngitis [Recovering/Resolving]
  - Rash [Not Recovered/Not Resolved]
  - Aspartate aminotransferase increased [Not Recovered/Not Resolved]
  - Gamma-glutamyltransferase increased [Not Recovered/Not Resolved]

NARRATIVE: CASE EVENT DATE: 20101215
